FAERS Safety Report 8811013 (Version 6)
Quarter: 2013Q3

REPORT INFORMATION
  Report Type: Spontaneous
  Country: US (occurrence: US)
  Receive Date: 20120927
  Receipt Date: 20130930
  Transmission Date: 20140515
  Serious: Yes (Hospitalization, Disabling, Other)
  Sender: FDA-Public Use
  Company Number: US-009507513-1103USA00995

PATIENT
  Sex: Female
  Weight: 99.32 kg

DRUGS (2)
  1. FOSAMAX [Suspect]
     Indication: OSTEOPOROSIS
     Dosage: 70 MG, QW
     Route: 048
     Dates: start: 20020128, end: 20080312
  2. FOSAMAX PLUS D [Suspect]
     Route: 048

REACTIONS (18)
  - Femur fracture [Not Recovered/Not Resolved]
  - Intramedullary rod insertion [Unknown]
  - Fall [Unknown]
  - Low turnover osteopathy [Not Recovered/Not Resolved]
  - Stress fracture [Unknown]
  - Hypertension [Unknown]
  - Blood cholesterol increased [Unknown]
  - Diabetes mellitus [Unknown]
  - Contusion [Unknown]
  - Exostosis [Unknown]
  - Osteoarthritis [Unknown]
  - Haemoglobin decreased [Unknown]
  - Blood urea increased [Unknown]
  - Metrorrhagia [Unknown]
  - Osteoarthritis [Unknown]
  - Fracture delayed union [Recovering/Resolving]
  - Thrombocytosis [Unknown]
  - Oedema peripheral [Unknown]
